FAERS Safety Report 13776434 (Version 1)
Quarter: 2017Q3

REPORT INFORMATION
  Report Type: Spontaneous
  Country: NO (occurrence: NO)
  Receive Date: 20170721
  Receipt Date: 20170721
  Transmission Date: 20171127
  Serious: Yes (Other)
  Sender: FDA-Public Use
  Company Number: NO-PFIZER INC-2450997

PATIENT
  Age: 55 Year
  Sex: Female

DRUGS (5)
  1. CIPROFLOXACIN. [Suspect]
     Active Substance: CIPROFLOXACIN
     Indication: URINARY TRACT INFECTION
     Dosage: NOT REPORTED
  2. TRAMADOL. [Suspect]
     Active Substance: TRAMADOL
     Dosage: 800 MG, FREQ: 1 DAY; INTERVAL: 1.
  3. DULOXETINE. [Interacting]
     Active Substance: DULOXETINE
     Indication: PAIN IN EXTREMITY
     Dosage: 60 MG, FREQ: 1 DAY; INTERVAL: 1.
  4. TRAMADOL. [Suspect]
     Active Substance: TRAMADOL
     Dosage: 600 MG, FREQ: 1 DAY; INTERVAL: 1.
  5. TRAMADOL. [Suspect]
     Active Substance: TRAMADOL
     Indication: PAIN IN EXTREMITY
     Dosage: 100 MG, FREQ: 3 DAY; INTERVAL: 1.

REACTIONS (2)
  - Serotonin syndrome [Unknown]
  - Drug interaction [Unknown]
